FAERS Safety Report 16771619 (Version 1)
Quarter: 2019Q3

REPORT INFORMATION
  Report Type: Spontaneous
  Country: US (occurrence: US)
  Receive Date: 20190715
  Receipt Date: 20190715
  Transmission Date: 20191005
  Serious: No
  Sender: FDA-Public Use
  Company Number: None

PATIENT
  Sex: Female

DRUGS (1)
  1. TALTZ [Suspect]
     Active Substance: IXEKIZUMAB
     Indication: PSORIASIS
     Route: 058
     Dates: start: 201903

REACTIONS (7)
  - Ill-defined disorder [None]
  - Headache [None]
  - Chills [None]
  - Pyrexia [None]
  - Vomiting [None]
  - Diarrhoea [None]
  - Viral infection [None]
